FAERS Safety Report 16524271 (Version 1)
Quarter: 2019Q3

REPORT INFORMATION
  Report Type: Spontaneous
  Country: SE (occurrence: SE)
  Receive Date: 20190703
  Receipt Date: 20190703
  Transmission Date: 20191004
  Serious: Yes (Life-Threatening, Hospitalization, Other)
  Sender: FDA-Public Use
  Company Number: SE-MACLEODS PHARMACEUTICALS US LTD-MAC2019021919

PATIENT

DRUGS (3)
  1. LAMOTRIGINE. [Concomitant]
     Active Substance: LAMOTRIGINE
     Indication: PRODUCT USED FOR UNKNOWN INDICATION
     Dosage: UNK,UNKNOWN AMOUNTS
     Route: 065
  2. QUETIAPINE 300MG TABLET [Suspect]
     Active Substance: QUETIAPINE
     Indication: PRODUCT USED FOR UNKNOWN INDICATION
     Dosage: SLOW RELEASE TABLET, 33 G (110 TABLETS X 300 MG) PROLONGED-RELEASE TABLET
     Route: 048
  3. OXAZEPAM. [Concomitant]
     Active Substance: OXAZEPAM
     Indication: PRODUCT USED FOR UNKNOWN INDICATION
     Dosage: UNK,UNKNOWN AMOUNTS
     Route: 065

REACTIONS (3)
  - Depressed level of consciousness [Recovered/Resolved]
  - Overdose [Recovered/Resolved]
  - Bezoar [Recovered/Resolved]
